FAERS Safety Report 5996701 (Version 11)
Quarter: 2021Q4

REPORT INFORMATION
  Report Type: Spontaneous
  Country: US (occurrence: US)
  Receive Date: 20060302
  Receipt Date: 20211124
  Transmission Date: 20220303
  Serious: Yes (Other)
  Sender: FDA-Public Use
  Company Number: US-JNJFOC-20060204962

PATIENT
  Age: 4 Year
  Sex: Male

DRUGS (4)
  1. RISPERDAL [Suspect]
     Active Substance: RISPERIDONE
     Indication: Product used for unknown indication
     Route: 048
  2. RISPERDAL [Suspect]
     Active Substance: RISPERIDONE
     Dosage: FROM 06/MAR/2003 TO 25/AUG/2003
     Route: 048
  3. ZYPREXA [Suspect]
     Active Substance: OLANZAPINE
     Indication: Product used for unknown indication
  4. SEROQUEL [Suspect]
     Active Substance: QUETIAPINE FUMARATE
     Indication: Product used for unknown indication

REACTIONS (8)
  - Blood glucose increased [Unknown]
  - Pancreatitis [Unknown]
  - Weight increased [Unknown]
  - Sleep terror [Unknown]
  - Aggression [Unknown]
  - Product administration error [Unknown]
  - Emotional disorder [Unknown]
  - Gynaecomastia [Unknown]

NARRATIVE: CASE EVENT DATE: 19991101
